FAERS Safety Report 7217954-0 (Version None)
Quarter: 2011Q1

REPORT INFORMATION
  Report Type: 
  Country: None (occurrence: None)
  Receive Date: 20110110
  Receipt Date: 20101230
  Transmission Date: 20110831
  Serious: Yes (Other)
  Sender: FDA-Public Use
  Company Number: A0903527A

PATIENT
  Sex: Female

DRUGS (2)
  1. RETROVIR [Suspect]
     Indication: ANTIVIRAL PROPHYLAXIS
  2. KALETRA [Suspect]
     Indication: ANTIVIRAL PROPHYLAXIS

REACTIONS (2)
  - DRUG EXPOSURE DURING PREGNANCY [None]
  - CONGENITAL HIV INFECTION [None]
